FAERS Safety Report 6531941-7 (Version None)
Quarter: 2010Q1

REPORT INFORMATION
  Report Type: 
  Country: None (occurrence: None)
  Receive Date: 20100108
  Receipt Date: 20100105
  Transmission Date: 20100710
  Serious: Yes (Death, Life-Threatening, Hospitalization, Disabling)
  Sender: FDA-Public Use
  Company Number: US-CELGENEUS-163-21880-09120873

PATIENT
  Sex: Female

DRUGS (3)
  1. REVLIMID [Suspect]
     Indication: MULTIPLE MYELOMA
     Route: 048
     Dates: start: 20091026, end: 20091101
  2. REVLIMID [Suspect]
     Route: 048
     Dates: start: 20091007, end: 20091009
  3. VELCADE [Suspect]
     Indication: MULTIPLE MYELOMA
     Dates: start: 20091026

REACTIONS (3)
  - ESCHERICHIA SEPSIS [None]
  - PANCYTOPENIA [None]
  - WHITE BLOOD CELL COUNT DECREASED [None]
